FAERS Safety Report 7952735-1 (Version None)
Quarter: 2011Q4

REPORT INFORMATION
  Report Type: 
  Country: None (occurrence: None)
  Receive Date: 20111201
  Receipt Date: 20111130
  Transmission Date: 20120403
  Serious: Yes (Hospitalization, Other)
  Sender: FDA-Public Use
  Company Number: IT-ABBOTT-11P-083-0874680-00

PATIENT
  Sex: Female

DRUGS (6)
  1. LEVOPRAID [Concomitant]
     Indication: DEPRESSION
  2. PAROXETINE HYDROCHLORIDE [Suspect]
     Indication: DEPRESSION
     Dosage: TOTAL
     Route: 048
     Dates: start: 20111002, end: 20111002
  3. REMERON [Concomitant]
  4. DEPAKENE [Concomitant]
  5. DEPAKENE [Suspect]
     Indication: DEPRESSION
     Dosage: TOTAL
     Route: 048
     Dates: start: 20111002, end: 20111002
  6. REMERON [Suspect]
     Indication: DEPRESSION
     Dosage: TOTAL
     Route: 048
     Dates: start: 20111002, end: 20111002

REACTIONS (2)
  - BRADYPHRENIA [None]
  - MULTIPLE DRUG OVERDOSE INTENTIONAL [None]
